FAERS Safety Report 16693172 (Version 2)
Quarter: 2019Q3

REPORT INFORMATION
  Report Type: Spontaneous
  Country: US (occurrence: US)
  Receive Date: 20190812
  Receipt Date: 20190917
  Transmission Date: 20191004
  Serious: No
  Sender: FDA-Public Use
  Company Number: US-CELGENEUS-USA-20190710750

PATIENT
  Sex: Male

DRUGS (2)
  1. REVLIMID [Suspect]
     Active Substance: LENALIDOMIDE
     Indication: OFF LABEL USE
  2. REVLIMID [Suspect]
     Active Substance: LENALIDOMIDE
     Indication: B-CELL LYMPHOMA
     Dosage: 20 MILLIGRAM
     Route: 048
     Dates: start: 20190615

REACTIONS (5)
  - Fatigue [Not Recovered/Not Resolved]
  - Skin reaction [Not Recovered/Not Resolved]
  - Dyspnoea [Not Recovered/Not Resolved]
  - Dizziness [Not Recovered/Not Resolved]
  - Red blood cell count decreased [Not Recovered/Not Resolved]

NARRATIVE: CASE EVENT DATE: 2019
